FAERS Safety Report 22302405 (Version 1)
Quarter: 2023Q2

REPORT INFORMATION
  Report Type: Report from Study
  Country: CA (occurrence: CA)
  Receive Date: 20230510
  Receipt Date: 20230510
  Transmission Date: 20230722
  Serious: Yes (Other)
  Sender: FDA-Public Use
  Company Number: CA-GILEAD-2023-0626199

PATIENT
  Sex: Female

DRUGS (10)
  1. SACITUZUMAB GOVITECAN-HZIY [Suspect]
     Active Substance: SACITUZUMAB GOVITECAN-HZIY
     Indication: Triple negative breast cancer
     Dosage: 409 MG
     Route: 042
     Dates: start: 20220608, end: 20230412
  2. ACETAMINOPHEN [Concomitant]
     Active Substance: ACETAMINOPHEN
     Dosage: 650 MG PO (PRE-MEDICATION PRIOR TO TRODELVY)
  3. CETIRIZINE HYDROCHLORIDE [Concomitant]
     Active Substance: CETIRIZINE HYDROCHLORIDE
     Dosage: 10 MG PO (PRE-MEDICATION PRIOR TO TRODELVY)
  4. ERIBULIN [Concomitant]
     Active Substance: ERIBULIN
  5. TAXOL [Concomitant]
     Active Substance: PACLITAXEL
  6. TAMOXIFEN [Concomitant]
     Active Substance: TAMOXIFEN
  7. PREGABALIN [Concomitant]
     Active Substance: PREGABALIN
     Dosage: MUSCLE PAIN 25 MG AT NIGHT AND 100MG IN THE MORNING
  8. SYNTHROID [Concomitant]
     Active Substance: LEVOTHYROXINE SODIUM
     Dosage: 0.1 IN AM
  9. CALCIUM\CHOLECALCIFEROL [Concomitant]
     Active Substance: CALCIUM\CHOLECALCIFEROL
  10. CANNABIS SATIVA SUBSP. INDICA TOP [Concomitant]
     Active Substance: CANNABIS SATIVA SUBSP. INDICA TOP
     Dosage: (PAIN MANAGEMENT, SLEEP AND APPETITE)

REACTIONS (2)
  - Disease progression [Unknown]
  - Inappropriate schedule of product administration [Unknown]
